FAERS Safety Report 17287558 (Version 1)
Quarter: 2020Q1

REPORT INFORMATION
  Report Type: Spontaneous
  Country: FR (occurrence: FR)
  Receive Date: 20200120
  Receipt Date: 20200120
  Transmission Date: 20200409
  Serious: Yes (Hospitalization)
  Sender: FDA-Public Use
  Company Number: FR-TEVA-2020-FR-1169153

PATIENT
  Age: 21 Year
  Sex: Male

DRUGS (6)
  1. LEXOMIL ROCHE [Suspect]
     Active Substance: BROMAZEPAM
     Indication: POISONING DELIBERATE
     Dosage: UNSPECIFIED
     Route: 048
     Dates: start: 20191208, end: 20191208
  2. DEPAMIDE [Suspect]
     Active Substance: VALPROMIDE
     Indication: TOXICITY TO VARIOUS AGENTS
     Dosage: UNSPECIFIED
     Route: 048
     Dates: start: 20191208, end: 20191208
  3. LORAZEPAM. [Suspect]
     Active Substance: LORAZEPAM
     Indication: POISONING DELIBERATE
     Dosage: UNSPECIFIED
     Route: 048
     Dates: start: 20191208, end: 20191208
  4. RISPERIDONE. [Suspect]
     Active Substance: RISPERIDONE
     Indication: POISONING DELIBERATE
     Dosage: UNSPECIFIED
     Route: 048
     Dates: start: 20191208, end: 20191208
  5. PARACETAMOL [Suspect]
     Active Substance: ACETAMINOPHEN
     Indication: POISONING DELIBERATE
     Dosage: UNSPECIFIED
     Route: 048
     Dates: start: 20191208, end: 20191208
  6. SERESTA [Suspect]
     Active Substance: OXAZEPAM
     Indication: POISONING DELIBERATE
     Dosage: UNSPECIFIED
     Route: 048
     Dates: start: 20191208, end: 20191208

REACTIONS (2)
  - Amnesia [Recovered/Resolved]
  - Loss of consciousness [Recovered/Resolved]

NARRATIVE: CASE EVENT DATE: 20191208
